FAERS Safety Report 6639952-8 (Version None)
Quarter: 2010Q1

REPORT INFORMATION
  Report Type: 
  Country: None (occurrence: None)
  Receive Date: 20100318
  Receipt Date: 20100308
  Transmission Date: 20100710
  Serious: Yes (Hospitalization, Other)
  Sender: FDA-Public Use
  Company Number: DE-BAYER-201018341GPV

PATIENT
  Age: 73 Year
  Sex: Male
  Weight: 80 kg

DRUGS (8)
  1. CIPRO [Suspect]
     Indication: SUBILEUS
     Dosage: UNIT DOSE: 500 MG
     Route: 048
     Dates: start: 20100117, end: 20100129
  2. VAGIMID [Concomitant]
     Indication: SUBILEUS
     Dosage: UNIT DOSE: 500 MG
     Route: 048
     Dates: start: 20100117, end: 20100129
  3. ASPIRIN [Concomitant]
     Indication: PERIPHERAL ARTERIAL OCCLUSIVE DISEASE
     Dosage: UNIT DOSE: 100 MG
     Route: 048
  4. ENALAPRIL MALEATE [Concomitant]
     Indication: HYPERTENSION
     Dosage: 1 - 0 - 1/2 PER DAY
     Route: 048
  5. PANTOZOL [Concomitant]
     Indication: DYSPEPSIA
     Dosage: UNIT DOSE: 20 MG
  6. SIMVA [Concomitant]
     Indication: HYPERCHOLESTEROLAEMIA
     Route: 048
  7. REMERGIL [Concomitant]
     Indication: DEPRESSION
     Dosage: 1/2 - 0 - 1 PER DAY
     Dates: start: 19990101
  8. PERFALGAN [Concomitant]
     Dates: start: 20100204

REACTIONS (6)
  - ABDOMINAL PAIN [None]
  - CHILLS [None]
  - CLOSTRIDIUM DIFFICILE COLITIS [None]
  - DIARRHOEA [None]
  - ENTERITIS [None]
  - PYREXIA [None]
